FAERS Safety Report 14938941 (Version 2)
Quarter: 2019Q3

REPORT INFORMATION
  Report Type: Spontaneous
  Country: US (occurrence: US)
  Receive Date: 20180525
  Receipt Date: 20190729
  Transmission Date: 20191004
  Serious: No
  Sender: FDA-Public Use
  Company Number: US-JNJFOC-20180519207

PATIENT
  Sex: Male

DRUGS (5)
  1. RISPERDAL [Suspect]
     Active Substance: RISPERIDONE
     Indication: AUTISM SPECTRUM DISORDER
     Dosage: IN VARYING DOSES OF 0.5 MG AND 1 MG.
     Route: 048
     Dates: start: 20110608, end: 20160505
  2. RISPERDAL [Suspect]
     Active Substance: RISPERIDONE
     Indication: ENCEPHALOPATHY
  3. RISPERDAL [Suspect]
     Active Substance: RISPERIDONE
     Indication: AUTISM SPECTRUM DISORDER
  4. RISPERDAL [Suspect]
     Active Substance: RISPERIDONE
     Indication: ADJUSTMENT DISORDER
  5. RISPERDAL [Suspect]
     Active Substance: RISPERIDONE
     Indication: PRODUCT USED FOR UNKNOWN INDICATION
     Route: 048

REACTIONS (2)
  - Emotional distress [Unknown]
  - Gynaecomastia [Unknown]
